FAERS Safety Report 18729033 (Version 2)
Quarter: 2021Q1

REPORT INFORMATION
  Report Type: Spontaneous
  Country: IT (occurrence: IT)
  Receive Date: 20210112
  Receipt Date: 20210305
  Transmission Date: 20210419
  Serious: Yes (Hospitalization)
  Sender: FDA-Public Use
  Company Number: NVSC2021IT004292

PATIENT
  Age: 51 Year
  Sex: Female

DRUGS (8)
  1. RIVOTRIL [Concomitant]
     Active Substance: CLONAZEPAM
     Indication: SUICIDE ATTEMPT
     Dosage: 5 DF TOTAL
     Route: 048
     Dates: start: 20210103, end: 20210103
  2. ZOLOFT [Concomitant]
     Active Substance: SERTRALINE HYDROCHLORIDE
     Indication: SUICIDE ATTEMPT
     Dosage: 5 DF TOTAL
     Route: 048
     Dates: start: 20210103, end: 20210103
  3. ENTUMIN 40 MG COMPRESSE [Concomitant]
     Active Substance: CLOTHIAPINE
     Route: 048
     Dates: start: 20210103, end: 20210103
  4. ENTUMIN [Concomitant]
     Active Substance: CLOTHIAPINE
     Indication: SUICIDE ATTEMPT
     Dosage: 200 MG TOTAL
     Route: 048
     Dates: start: 20210103, end: 20210103
  5. NOAN [Concomitant]
     Active Substance: DIAZEPAM
     Indication: SUICIDE ATTEMPT
     Dosage: 25 MG TOTAL
     Route: 048
     Dates: start: 20210103, end: 20210103
  6. DEPAKIN [Concomitant]
     Active Substance: VALPROATE SODIUM
     Indication: SUICIDE ATTEMPT
     Dosage: 5 DF TOTAL
     Route: 048
     Dates: start: 20210103, end: 20210103
  7. OLANZAPINE. [Suspect]
     Active Substance: OLANZAPINE
     Indication: SUICIDE ATTEMPT
     Dosage: 5 DF TOTAL
     Route: 048
     Dates: start: 20210103, end: 20210103
  8. NEO?ANGIN [Concomitant]
     Indication: SUICIDE ATTEMPT
     Route: 048
     Dates: start: 20210103, end: 20210103

REACTIONS (4)
  - Intentional overdose [Recovering/Resolving]
  - Suicide attempt [Recovering/Resolving]
  - Ataxia [Recovering/Resolving]
  - Depressed level of consciousness [Recovering/Resolving]

NARRATIVE: CASE EVENT DATE: 20210103
